FAERS Safety Report 8998357 (Version 1)
Quarter: 2013Q1

REPORT INFORMATION
  Report Type: Spontaneous
  Country: JP (occurrence: JP)
  Receive Date: 20130102
  Receipt Date: 20130102
  Transmission Date: 20140127
  Serious: Yes (Life-Threatening)
  Sender: FDA-Public Use
  Company Number: JP-ASTRAZENECA-2012SE96228

PATIENT
  Sex: Male
  Weight: 71 kg

DRUGS (3)
  1. XYLOCAINE [Suspect]
     Indication: LOCAL ANAESTHESIA
     Route: 045
  2. ATROPINE SULFATE HYDRATE [Concomitant]
     Route: 030
  3. ATARAX-P [Concomitant]
     Route: 030

REACTIONS (1)
  - Anaphylactic shock [Recovered/Resolved]
